FAERS Safety Report 6370732-7 (Version None)
Quarter: 2009Q3

REPORT INFORMATION
  Report Type: 
  Country: None (occurrence: None)
  Receive Date: 20090923
  Receipt Date: 20070522
  Transmission Date: 20100115
  Serious: Yes (Other)
  Sender: FDA-Public Use
  Company Number: US-ASTRAZENECA-2006UW25661

PATIENT
  Age: 14185 Day
  Sex: Female
  Weight: 92.5 kg

DRUGS (26)
  1. SEROQUEL [Suspect]
     Indication: MAJOR DEPRESSION
     Dosage: 25MG TO 75MG, AT NIGHT
     Route: 048
     Dates: start: 20060426, end: 20060721
  2. SEROQUEL [Suspect]
     Indication: PANIC ATTACK
     Dosage: 25MG TO 75MG, AT NIGHT
     Route: 048
     Dates: start: 20060426, end: 20060721
  3. SEROQUEL [Suspect]
     Indication: INSOMNIA
     Dosage: 25MG TO 75MG, AT NIGHT
     Route: 048
     Dates: start: 20060426, end: 20060721
  4. SEROQUEL [Suspect]
     Indication: ANXIETY
     Dosage: 25MG TO 75MG, AT NIGHT
     Route: 048
     Dates: start: 20060426, end: 20060721
  5. SEROQUEL [Suspect]
     Dosage: UNKNOWN DOSE
     Route: 048
     Dates: start: 20060525
  6. SEROQUEL [Suspect]
     Dosage: UNKNOWN DOSE
     Route: 048
     Dates: start: 20060525
  7. SEROQUEL [Suspect]
     Dosage: UNKNOWN DOSE
     Route: 048
     Dates: start: 20060525
  8. SEROQUEL [Suspect]
     Dosage: UNKNOWN DOSE
     Route: 048
     Dates: start: 20060525
  9. SEROQUEL [Suspect]
     Dosage: 25MG, 2 TABS AT NIGHT
     Route: 048
     Dates: start: 20060928
  10. SEROQUEL [Suspect]
     Dosage: 25MG, 2 TABS AT NIGHT
     Route: 048
     Dates: start: 20060928
  11. SEROQUEL [Suspect]
     Dosage: 25MG, 2 TABS AT NIGHT
     Route: 048
     Dates: start: 20060928
  12. SEROQUEL [Suspect]
     Dosage: 25MG, 2 TABS AT NIGHT
     Route: 048
     Dates: start: 20060928
  13. SEROQUEL [Suspect]
     Route: 048
     Dates: end: 20060525
  14. SEROQUEL [Suspect]
     Route: 048
     Dates: end: 20060525
  15. SEROQUEL [Suspect]
     Route: 048
     Dates: end: 20060525
  16. SEROQUEL [Suspect]
     Route: 048
     Dates: end: 20060525
  17. ZYPREXA [Suspect]
     Route: 048
     Dates: start: 20060404, end: 20060426
  18. ZYPREXA [Suspect]
     Route: 048
     Dates: start: 20060425, end: 20060525
  19. ZOLOFT [Concomitant]
     Dates: start: 20000101
  20. ASPIRIN [Concomitant]
     Route: 048
     Dates: start: 20040812
  21. PAXIL [Concomitant]
     Route: 048
     Dates: start: 20060315
  22. LAMICTAL [Concomitant]
     Route: 048
     Dates: start: 20070808
  23. VYTORIN [Concomitant]
     Dosage: 10/20MG STRENGTH
     Route: 048
     Dates: start: 20060915
  24. LISINOPRIL [Concomitant]
     Route: 048
     Dates: start: 20060515
  25. AMBIEN [Concomitant]
     Route: 048
     Dates: start: 20070224
  26. BUSPAR [Concomitant]
     Indication: ANXIETY
     Route: 048
     Dates: start: 20040211

REACTIONS (4)
  - DIABETES MELLITUS [None]
  - DIABETES MELLITUS INADEQUATE CONTROL [None]
  - INSULIN-REQUIRING TYPE 2 DIABETES MELLITUS [None]
  - TYPE 2 DIABETES MELLITUS [None]
